FAERS Safety Report 19658868 (Version 2)
Quarter: 2022Q1

REPORT INFORMATION
  Report Type: Spontaneous
  Country: GB (occurrence: GB)
  Receive Date: 20210805
  Receipt Date: 20220330
  Transmission Date: 20220423
  Serious: Yes (Hospitalization, Disabling, Other)
  Sender: FDA-Public Use
  Company Number: None

PATIENT
  Age: 28 Year
  Sex: Female
  Weight: 70 kg

DRUGS (7)
  1. NEXPLANON [Suspect]
     Active Substance: ETONOGESTREL
     Indication: Contraception
     Dosage: UNK
     Route: 059
     Dates: start: 20181201, end: 20210624
  2. ETHINYL ESTRADIOL\LEVONORGESTREL [Suspect]
     Active Substance: ETHINYL ESTRADIOL\LEVONORGESTREL
     Indication: Heavy menstrual bleeding
     Dosage: UNK
     Route: 048
     Dates: start: 20210320, end: 20210624
  3. BUTYLSCOPOLAMINE BROMIDE [Concomitant]
     Active Substance: BUTYLSCOPOLAMINE BROMIDE
     Indication: Ill-defined disorder
     Dosage: UNK
  4. ESCITALOPRAM [Concomitant]
     Active Substance: ESCITALOPRAM OXALATE
     Indication: Ill-defined disorder
     Dosage: UNK
  5. IBUPROFEN [Concomitant]
     Active Substance: IBUPROFEN
     Indication: Ill-defined disorder
     Dosage: UNK
  6. MEBEVERINE [Concomitant]
     Active Substance: MEBEVERINE
     Indication: Ill-defined disorder
     Dosage: UNK
  7. ACETAMINOPHEN [Concomitant]
     Active Substance: ACETAMINOPHEN
     Indication: Ill-defined disorder
     Dosage: UNK

REACTIONS (3)
  - Abdominal pain [Recovered/Resolved]
  - Heavy menstrual bleeding [Recovered/Resolved]
  - Uterine enlargement [Unknown]

NARRATIVE: CASE EVENT DATE: 20210524
